FAERS Safety Report 24256238 (Version 2)
Quarter: 2024Q4

REPORT INFORMATION
  Report Type: Spontaneous
  Country: JP (occurrence: JP)
  Receive Date: 20240828
  Receipt Date: 20241002
  Transmission Date: 20250115
  Serious: Yes (Hospitalization)
  Sender: AMGEN
  Company Number: JP-DSJP-DSJ-2024-141233

PATIENT
  Age: 60 Year
  Sex: Male

DRUGS (10)
  1. DENOSUMAB [Suspect]
     Active Substance: DENOSUMAB
     Indication: Osteoporosis
     Dosage: 60 MG, ONCE EVERY 6 MO
     Route: 058
  2. SACUBITRIL\VALSARTAN [Concomitant]
     Active Substance: SACUBITRIL\VALSARTAN
     Indication: Product used for unknown indication
     Dosage: 100 MG, BID, AFTER BREAKFAST AND DINNER
     Route: 065
  3. BISOPROLOL [Concomitant]
     Active Substance: BISOPROLOL\BISOPROLOL FUMARATE
     Indication: Product used for unknown indication
     Dosage: 5 MG, QD, AFTER BREAKFAST
     Route: 065
  4. EPLERENONE [Concomitant]
     Active Substance: EPLERENONE
     Indication: Product used for unknown indication
     Dosage: 25 MG, QD, AFTER BREAKFAST
     Route: 065
  5. EMPAGLIFLOZIN [Concomitant]
     Active Substance: EMPAGLIFLOZIN
     Indication: Product used for unknown indication
     Dosage: 10 MG, QD, AFTER BREAKFAST
     Route: 065
  6. FUROSEMIDE [Concomitant]
     Active Substance: FUROSEMIDE
     Indication: Product used for unknown indication
     Dosage: 40 MG, QD, AFTER BREAKFAST
     Route: 065
  7. LICORICE ROOT EXTRACT\RHUBARB [Concomitant]
     Active Substance: LICORICE ROOT EXTRACT\RHUBARB
     Indication: Product used for unknown indication
     Dosage: 5 G, BID, BEFORE GOING TO BED
     Route: 065
  8. ALFACALCIDOL [Concomitant]
     Active Substance: ALFACALCIDOL
     Indication: Product used for unknown indication
     Dosage: 0.25 UG, QD, AFTER BREAKFAST
     Route: 065
  9. NIRMATRELVIR [Concomitant]
     Active Substance: NIRMATRELVIR
     Indication: Product used for unknown indication
     Dosage: 300 MG, BID, AFTER BREAKFAST AND DINNER
     Route: 065
  10. RITONAVIR [Concomitant]
     Active Substance: RITONAVIR
     Indication: Product used for unknown indication
     Dosage: 100 MG, BID, AFTER BREAKFAST AND DINNER
     Route: 065

REACTIONS (1)
  - Cardiac failure [Unknown]
